FAERS Safety Report 22141551 (Version 1)
Quarter: 2023Q1

REPORT INFORMATION
  Report Type: Spontaneous
  Country: US (occurrence: None)
  Receive Date: 20230325
  Receipt Date: 20230325
  Transmission Date: 20230418
  Serious: Yes (Disabling)
  Sender: FDA-Public Use
  Company Number: None

PATIENT
  Age: 30 Year
  Sex: Male
  Weight: 79.65 kg

DRUGS (1)
  1. ROHTO ALL-IN-ONE [Suspect]
     Active Substance: HYPROMELLOSES\TETRAHYDROZOLINE HYDROCHLORIDE\ZINC SULFATE
     Indication: Ocular hyperaemia
     Dates: start: 20230317, end: 20230318

REACTIONS (6)
  - Infection [None]
  - Ocular hyperaemia [None]
  - Eye swelling [None]
  - Vision blurred [None]
  - Instillation site erythema [None]
  - Visual impairment [None]

NARRATIVE: CASE EVENT DATE: 20230317
